FAERS Safety Report 7350980-X (Version None)
Quarter: 2011Q1

REPORT INFORMATION
  Report Type: 
  Country: None (occurrence: None)
  Receive Date: 20110314
  Receipt Date: 20110309
  Transmission Date: 20110831
  Serious: Yes (Other)
  Sender: FDA-Public Use
  Company Number: GR-PFIZER INC-2011041382

PATIENT
  Sex: Female

DRUGS (1)
  1. LYRICA [Suspect]
     Dosage: 75 MG, 3X/DAY
     Route: 048
     Dates: start: 20100101, end: 20100101

REACTIONS (3)
  - HYPOTENSION [None]
  - BRADYCARDIA [None]
  - ELECTROCARDIOGRAM REPOLARISATION ABNORMALITY [None]
